FAERS Safety Report 8592410-6 (Version None)
Quarter: 2012Q3

REPORT INFORMATION
  Report Type: 
  Country: None (occurrence: None)
  Receive Date: 20120814
  Receipt Date: 20120807
  Transmission Date: 20120928
  Serious: Yes (Hospitalization, Disabling)
  Sender: FDA-Public Use
  Company Number: US-009507513-1207USA013122

PATIENT

DRUGS (5)
  1. ATORVASTATIN [Concomitant]
  2. TEMODAR [Suspect]
     Dosage: 150 MG/M2, UNK
  3. LOPRESSOR [Concomitant]
  4. TEMODAR [Suspect]
     Indication: BRAIN NEOPLASM
     Dosage: 75 MG/M2, CONCOMITANTLY WITH RADIATION
  5. KEPPRA [Concomitant]

REACTIONS (2)
  - NEPHROGENIC DIABETES INSIPIDUS [None]
  - MENTAL STATUS CHANGES [None]
